FAERS Safety Report 20968686 (Version 1)
Quarter: 2022Q2

REPORT INFORMATION
  Report Type: Report from Study
  Country: IT (occurrence: IT)
  Receive Date: 20220616
  Receipt Date: 20220616
  Transmission Date: 20220721
  Serious: Yes (Hospitalization)
  Sender: FDA-Public Use
  Company Number: None

PATIENT
  Age: 76 Year
  Sex: Female
  Weight: 76 kg

DRUGS (1)
  1. GABAPENTIN [Suspect]
     Active Substance: GABAPENTIN
     Indication: Trigeminal neuralgia
     Dosage: UNIT DOSE : 900 MG , DURATION : 10 DAYS , FREQUENCY TIME : 1 DAY , ADDITIONAL INFO : THERAPEUTIC ERR
     Route: 048
     Dates: start: 20220509, end: 20220519

REACTIONS (5)
  - Nystagmus [Recovered/Resolved]
  - Tremor [Recovered/Resolved]
  - Vertigo [Recovered/Resolved]
  - Balance disorder [Recovered/Resolved]
  - Overdose [Recovered/Resolved]

NARRATIVE: CASE EVENT DATE: 20220519
